FAERS Safety Report 21875291 (Version 2)
Quarter: 2023Q1

REPORT INFORMATION
  Report Type: Spontaneous
  Country: US (occurrence: US)
  Receive Date: 20230117
  Receipt Date: 20230324
  Transmission Date: 20230417
  Serious: No
  Sender: FDA-Public Use
  Company Number: US-AMGEN-USASP2023004848

PATIENT
  Age: 67 Year
  Sex: Female

DRUGS (5)
  1. MVASI [Suspect]
     Active Substance: BEVACIZUMAB-AWWB
     Indication: Ovarian cancer
     Dosage: 1100 MILLIGRAM, Q3WK
     Route: 065
     Dates: start: 20210909
  2. MVASI [Suspect]
     Active Substance: BEVACIZUMAB-AWWB
     Indication: Off label use
     Dosage: 1100 MILLIGRAM, Q3WK
     Route: 065
  3. MVASI [Suspect]
     Active Substance: BEVACIZUMAB-AWWB
     Dosage: 1700 MILLIGRAM, Q3WK
     Route: 042
     Dates: start: 20210909
  4. MVASI [Suspect]
     Active Substance: BEVACIZUMAB-AWWB
     Dosage: 1700 MILLIGRAM, Q3WK
     Route: 042
  5. ABRAXANE [Concomitant]
     Active Substance: PACLITAXEL

REACTIONS (5)
  - Urine analysis abnormal [Unknown]
  - Off label use [Unknown]
  - Diarrhoea [Unknown]
  - Fatigue [Unknown]
  - Nausea [Unknown]

NARRATIVE: CASE EVENT DATE: 20210909
